FAERS Safety Report 7472764-4 (Version None)
Quarter: 2011Q2

REPORT INFORMATION
  Report Type: 
  Country: None (occurrence: None)
  Receive Date: 20110511
  Receipt Date: 20110427
  Transmission Date: 20111010
  Serious: Yes (Hospitalization)
  Sender: FDA-Public Use
  Company Number: JP-JNJFOC-20110407010

PATIENT
  Sex: Female
  Weight: 37 kg

DRUGS (8)
  1. ONEALFA [Concomitant]
     Indication: OSTEOPOROSIS
     Dosage: 0.5 RG
     Route: 048
  2. REMICADE [Suspect]
     Indication: RHEUMATOID ARTHRITIS
     Dosage: 8 INFUSIONS ON UNKNOWN DATES
     Route: 042
  3. REMICADE [Suspect]
     Route: 042
  4. MEDROL [Suspect]
     Indication: RHEUMATOID ARTHRITIS
     Route: 048
  5. THYRADIN [Concomitant]
     Indication: HYPOTHYROIDISM
     Dosage: 50 RG
     Route: 048
  6. METHOTREXATE [Suspect]
     Indication: RHEUMATOID ARTHRITIS
     Route: 048
  7. REMICADE [Suspect]
     Dosage: CHANGED FROM 10TH  TO 11TH DOSE
     Route: 042
  8. BONALON [Concomitant]
     Indication: OSTEOPOROSIS
     Route: 048

REACTIONS (1)
  - PNEUMOCYSTIS JIROVECI PNEUMONIA [None]
